FAERS Safety Report 10899778 (Version 1)
Quarter: 2015Q1

REPORT INFORMATION
  Report Type: Report from Study
  Country: BR (occurrence: BR)
  Receive Date: 20150310
  Receipt Date: 20150310
  Transmission Date: 20150721
  Serious: Yes (Death, Hospitalization)
  Sender: FDA-Public Use
  Company Number: PHHY2015BR027646

PATIENT
  Age: 83 Year
  Sex: Female
  Weight: 45 kg

DRUGS (1)
  1. EXELON PATCH [Suspect]
     Active Substance: RIVASTIGMINE
     Indication: DEMENTIA ALZHEIMER^S TYPE
     Dosage: 9.5 MG/ 24 HOURS
     Route: 062
     Dates: end: 20150119

REACTIONS (4)
  - Bronchopneumonia [Fatal]
  - Renal impairment [Fatal]
  - Blood pressure fluctuation [Fatal]
  - Functional gastrointestinal disorder [Fatal]

NARRATIVE: CASE EVENT DATE: 20150119
